FAERS Safety Report 25282695 (Version 1)
Quarter: 2025Q2

REPORT INFORMATION
  Report Type: Spontaneous
  Country: DE (occurrence: DE)
  Receive Date: 20250508
  Receipt Date: 20250508
  Transmission Date: 20250717
  Serious: Yes (Congenital Anomaly)
  Sender: AUROBINDO
  Company Number: DE-EMB-M201811678-1

PATIENT
  Sex: Female
  Weight: 3.55 kg

DRUGS (2)
  1. OLANZAPINE [Suspect]
     Active Substance: OLANZAPINE
     Indication: Psychotic disorder
     Dosage: 5 MILLIGRAM, ONCE A DAY (SINCE 2013)
     Route: 064
     Dates: start: 201809, end: 201905
  2. PROGESTERONE [Suspect]
     Active Substance: PROGESTERONE
     Indication: Prophylaxis of abortion
     Dosage: 200 MILLIGRAM, ONCE A DAY (APPLICATION POSSIBLY LONGER)
     Route: 064
     Dates: start: 201809, end: 201811

REACTIONS (2)
  - Atrial septal defect [Unknown]
  - Foetal exposure during pregnancy [Unknown]
